FAERS Safety Report 11596930 (Version 1)
Quarter: 2015Q4

REPORT INFORMATION
  Report Type: Spontaneous
  Country: US (occurrence: US)
  Receive Date: 20151006
  Receipt Date: 20151006
  Transmission Date: 20160304
  Serious: Yes (Hospitalization)
  Sender: FDA-Public Use
  Company Number: US-HORIZON-RAV-0079-2015

PATIENT
  Age: 20 Year
  Sex: Female

DRUGS (1)
  1. RAVICTI [Suspect]
     Active Substance: GLYCEROL PHENYLBUTYRATE
     Indication: ARGININOSUCCINATE SYNTHETASE DEFICIENCY
     Dosage: 5 ML THRICE DAILY
     Dates: start: 20140428

REACTIONS (1)
  - Ammonia increased [Recovered/Resolved]

NARRATIVE: CASE EVENT DATE: 201509
